FAERS Safety Report 4495872-9 (Version None)
Quarter: 2004Q4

REPORT INFORMATION
  Report Type: 
  Country: None (occurrence: None)
  Receive Date: 20041104
  Receipt Date: 20041022
  Transmission Date: 20050328
  Serious: Yes (Other)
  Sender: FDA-Public Use
  Company Number: HQWYE085326OCT04

PATIENT
  Sex: Male

DRUGS (2)
  1. EFFEXOR XR [Suspect]
     Indication: DEPRESSION
     Dosage: ^OVER 300 MG DAILY^,  TRANSPLACENTAL
     Route: 064
  2. WELLBUTRIN [Concomitant]

REACTIONS (5)
  - ARRESTED LABOUR [None]
  - CAESAREAN SECTION [None]
  - DRUG EXPOSURE DURING PREGNANCY [None]
  - NEONATAL ASPIRATION [None]
  - NEONATAL PNEUMONIA [None]
